FAERS Safety Report 22259432 (Version 1)
Quarter: 2023Q2

REPORT INFORMATION
  Report Type: Report from Study
  Country: GB (occurrence: GB)
  Receive Date: 20230427
  Receipt Date: 20230427
  Transmission Date: 20230722
  Serious: Yes (Hospitalization)
  Sender: FDA-Public Use
  Company Number: GB-MYLANLABS-2023M1042968

PATIENT
  Age: 5 Decade
  Sex: Male

DRUGS (1)
  1. CLOZAPINE [Suspect]
     Active Substance: CLOZAPINE
     Indication: Product used for unknown indication
     Dosage: UNK
     Route: 065

REACTIONS (9)
  - Multiple organ dysfunction syndrome [Recovering/Resolving]
  - Faecaloma [Recovering/Resolving]
  - Gastrointestinal hypomotility [Recovering/Resolving]
  - Tachycardia [Recovering/Resolving]
  - Hypotension [Recovering/Resolving]
  - Large intestinal obstruction [Recovering/Resolving]
  - Constipation [Recovering/Resolving]
  - Sepsis [Recovering/Resolving]
  - Renal failure [Recovering/Resolving]
